FAERS Safety Report 8989760 (Version 1)
Quarter: 2012Q4

REPORT INFORMATION
  Report Type: 
  Country: US (occurrence: US)
  Receive Date: 20121228
  Receipt Date: 20121228
  Transmission Date: 20130627
  Serious: Yes (Other)
  Sender: FDA-Public Use
  Company Number: US-B.I. PHARMACEUTICALS,INC./RIDGEFIELD-2012-BI-04417GD

PATIENT
  Age: 12 Year
  Sex: Male

DRUGS (8)
  1. CLONIDINE [Suspect]
     Indication: EPIDURAL ANALGESIA
     Dosage: strength: 1 mcg/mL
     Route: 008
  2. BUPIVACAINE [Suspect]
     Indication: EPIDURAL ANALGESIA
     Route: 008
  3. ROPIVACAINE [Suspect]
     Indication: EPIDURAL ANALGESIA
     Route: 008
  4. CHLOROPROCAINE [Suspect]
     Indication: EPIDURAL ANALGESIA
     Dosage: strength: 14mL of 3%
     Route: 008
  5. FENTANYL [Suspect]
     Indication: EPIDURAL ANALGESIA
     Dosage: 2 mcg/mL
     Route: 008
  6. BUTORPHANOL [Suspect]
     Indication: EPIDURAL ANALGESIA
     Dosage: strength: 4mcg/mL
     Route: 008
  7. LIDOCAINE [Concomitant]
     Dosage: strength: 3mL of 1.5%
  8. EPINEPHRINE [Concomitant]
     Dosage: strength: 1:200000

REACTIONS (12)
  - Neurotoxicity [Unknown]
  - Inadequate analgesia [Unknown]
  - Urinary incontinence [Recovered/Resolved]
  - Constipation [Recovered/Resolved]
  - Hypoaesthesia [Recovered/Resolved]
  - Anaesthetic complication [Recovered/Resolved]
  - Areflexia [Recovered/Resolved]
  - Anorectal disorder [Unknown]
  - Sensory loss [Unknown]
  - Central nervous system inflammation [Unknown]
  - Nerve root lesion [Unknown]
  - Lumbosacral plexus lesion [Unknown]
